FAERS Safety Report 12557719 (Version 1)
Quarter: 2016Q3

REPORT INFORMATION
  Report Type: Spontaneous
  Country: PL (occurrence: PL)
  Receive Date: 20160714
  Receipt Date: 20160714
  Transmission Date: 20161109
  Serious: Yes (Other)
  Sender: FDA-Public Use
  Company Number: PL-WATSON-2015-23512

PATIENT
  Age: 25 Year
  Sex: Female

DRUGS (2)
  1. CARBOPLATIN (UNKNOWN) [Suspect]
     Active Substance: CARBOPLATIN
     Indication: BORDERLINE SEROUS TUMOUR OF OVARY
     Dosage: EVERY 21 DAYS FOR 6 CYCLES
     Route: 065
     Dates: start: 20120817, end: 20130118
  2. PACLITAXEL (UNKNOWN) [Suspect]
     Active Substance: PACLITAXEL
     Indication: BORDERLINE SEROUS TUMOUR OF OVARY
     Dosage: EVERY 21 DAYS FOR 6 CYCLES
     Route: 065
     Dates: start: 20120817, end: 20130118

REACTIONS (4)
  - Neutropenia [Unknown]
  - Arthralgia [Unknown]
  - Myalgia [Unknown]
  - Thrombocytopenia [Unknown]
